FAERS Safety Report 9514825 (Version 1)
Quarter: 2013Q3

REPORT INFORMATION
  Report Type: Spontaneous
  Country: CA (occurrence: None)
  Receive Date: 20130816
  Receipt Date: 20130816
  Transmission Date: 20140515
  Serious: Yes (Other)
  Sender: FDA-Public Use
  Company Number: 2013036960

PATIENT
  Age: 61 Year
  Sex: Female

DRUGS (2)
  1. PRIVIGEN [Suspect]
     Indication: METASTASIS
     Route: 042
     Dates: start: 20120709, end: 20120709
  2. PRIVIGEN [Suspect]
     Indication: PLASMA CELL MYELOMA
     Route: 042
     Dates: start: 20120709, end: 20120709

REACTIONS (9)
  - Acute haemolytic transfusion reaction [None]
  - Off label use [None]
  - Chills [None]
  - Dyspnoea [None]
  - Back pain [None]
  - Chest pain [None]
  - Headache [None]
  - Cyanosis [None]
  - Blood pressure increased [None]
